FAERS Safety Report 4753132-2 (Version None)
Quarter: 2005Q3

REPORT INFORMATION
  Report Type: 
  Country: None (occurrence: None)
  Receive Date: 20050826
  Receipt Date: 20050513
  Transmission Date: 20060218
  Serious: Yes (Hospitalization)
  Sender: FDA-Public Use
  Company Number: US-MERCK-0505USA01934

PATIENT
  Age: 49 Year
  Sex: Male
  Weight: 84 kg

DRUGS (6)
  1. VIOXX [Suspect]
     Indication: BACK PAIN
     Route: 048
     Dates: start: 20000101, end: 20030701
  2. VIOXX [Suspect]
     Indication: INFLAMMATION
     Route: 048
     Dates: start: 20000101, end: 20030701
  3. NEURONTIN [Concomitant]
     Route: 065
  4. ULTRAM [Concomitant]
     Route: 065
     Dates: start: 20000101, end: 20030101
  5. ZANAFLEX [Concomitant]
     Route: 065
  6. PAXIL [Concomitant]
     Route: 065
     Dates: start: 20000101

REACTIONS (14)
  - ANGINA UNSTABLE [None]
  - ANXIETY [None]
  - BLOOD PRESSURE DECREASED [None]
  - BLOOD TRIGLYCERIDES INCREASED [None]
  - CORONARY ARTERY STENOSIS [None]
  - DEPRESSION [None]
  - DYSPEPSIA [None]
  - FATIGUE [None]
  - HIGH DENSITY LIPOPROTEIN INCREASED [None]
  - MITRAL VALVE INCOMPETENCE [None]
  - MITRAL VALVE PROLAPSE [None]
  - MYOCARDIAL INFARCTION [None]
  - ROAD TRAFFIC ACCIDENT [None]
  - VENTRICULAR HYPERTROPHY [None]
